FAERS Safety Report 8543136-6 (Version None)
Quarter: 2012Q3

REPORT INFORMATION
  Report Type: 
  Country: None (occurrence: None)
  Receive Date: 20120727
  Receipt Date: 20120315
  Transmission Date: 20120928
  Serious: No
  Sender: FDA-Public Use
  Company Number: US-MYLANLABS-2012S1005918

PATIENT
  Age: 24 Year
  Sex: Female

DRUGS (3)
  1. LEVOTHYROXINE SODIUM [Suspect]
     Indication: THYROID DISORDER
     Route: 048
     Dates: start: 20110901
  2. VITAMIN [Concomitant]
  3. SUBOXONE [Concomitant]

REACTIONS (1)
  - HAIR GROWTH ABNORMAL [None]
